FAERS Safety Report 22532176 (Version 1)
Quarter: 2023Q2

REPORT INFORMATION
  Report Type: Spontaneous
  Country: US (occurrence: None)
  Receive Date: 20230606
  Receipt Date: 20230606
  Transmission Date: 20230722
  Serious: No
  Sender: FDA-Public Use
  Company Number: None

PATIENT
  Sex: Female

DRUGS (7)
  1. VANADIUM [Suspect]
     Active Substance: VANADIUM
     Indication: Multiple sclerosis
     Dosage: 14 MG ORAL??TAKE 1 TABLET BY MOUTH DAILY
     Route: 048
     Dates: start: 20230412
  2. AUBAGIO [Concomitant]
  3. CARTIA XT [Concomitant]
     Active Substance: DILTIAZEM HYDROCHLORIDE
  4. DULOXETINE [Concomitant]
     Active Substance: DULOXETINE
  5. HYDROCODONE BITARTRATE [Concomitant]
     Active Substance: HYDROCODONE BITARTRATE
  6. IBUPROFEN [Concomitant]
     Active Substance: IBUPROFEN
  7. VITAMIN D3 [Concomitant]
     Active Substance: CHOLECALCIFEROL

REACTIONS (8)
  - Bladder disorder [None]
  - Gastrointestinal disorder [None]
  - Cognitive disorder [None]
  - Mobility decreased [None]
  - Fall [None]
  - Sensory disturbance [None]
  - Fatigue [None]
  - Visual impairment [None]
